FAERS Safety Report 9390847 (Version 3)
Quarter: 2013Q4

REPORT INFORMATION
  Report Type: Spontaneous
  Country: AU (occurrence: AU)
  Receive Date: 20130709
  Receipt Date: 20131116
  Transmission Date: 20140711
  Serious: Yes (Other)
  Sender: FDA-Public Use
  Company Number: PHHY2013AU072035

PATIENT
  Age: 82 Year
  Sex: Female

DRUGS (18)
  1. EXELON PATCH [Suspect]
     Indication: DEMENTIA ALZHEIMER^S TYPE
     Dosage: 18 MG, DAILY
     Route: 062
     Dates: start: 20080926
  2. ZOLOFT [Suspect]
     Indication: DEPRESSION
     Dosage: 100 MG, DAILY
     Route: 048
     Dates: start: 20070904
  3. MONOAMINE OXIDASE B INHIBITORS [Suspect]
     Indication: DEMENTIA ALZHEIMER^S TYPE
     Dosage: UNK UKN, UNK
     Route: 048
     Dates: start: 20130408, end: 20130621
  4. SERTRALINE [Concomitant]
     Indication: DEPRESSION
     Dosage: 50 MG,DAILY
     Route: 048
     Dates: start: 20121221
  5. ARICEPT [Concomitant]
     Indication: DEMENTIA ALZHEIMER^S TYPE
     Dosage: 10 MG, DAILY
     Route: 048
     Dates: start: 201203
  6. GLIBENCLAMIDE [Concomitant]
     Indication: TYPE 2 DIABETES MELLITUS
     Dosage: 2 MG, QD ( 2 IN 1 D)
     Route: 048
     Dates: start: 1990, end: 20130327
  7. METFORMIN [Concomitant]
     Indication: TYPE 2 DIABETES MELLITUS
     Dosage: 1000 MG,DAILY
     Route: 048
     Dates: start: 1984
  8. AMLODIPINE [Concomitant]
     Indication: CORONARY ARTERY DISEASE
     Dosage: 5 MG, DAILY
     Dates: start: 1980
  9. QUINAPRIL [Concomitant]
     Indication: HYPERTENSION
     Dosage: 40 MG,DAILY
     Route: 048
     Dates: start: 1985, end: 20130327
  10. QUINAPRIL [Concomitant]
     Dosage: 20 MG, DAILY
     Route: 048
     Dates: start: 20130328
  11. COSOPT [Concomitant]
     Indication: GLAUCOMA
     Dosage: 2 DF, DAILY
     Route: 047
     Dates: start: 201203
  12. LUMIGAN [Concomitant]
     Indication: GLAUCOMA
     Dosage: 0.3 %, DAILY
     Route: 047
     Dates: start: 201203
  13. ALPHAGAN [Concomitant]
     Indication: GLAUCOMA
     Dosage: 0.1 %,DAILY
     Route: 047
     Dates: start: 201203
  14. LOVASTATIN [Concomitant]
     Indication: HYPERLIPIDAEMIA
     Dosage: 40 MG,DAILY
     Route: 048
     Dates: start: 1987
  15. CIPROFLOXACIN [Concomitant]
     Indication: URINARY TRACT INFECTION
     Dosage: 2 DF, DAILY
     Route: 048
     Dates: start: 20130208, end: 20130212
  16. GLIMEPRID [Concomitant]
     Indication: TYPE 2 DIABETES MELLITUS
     Dosage: 2 MG, DAILY
     Route: 048
     Dates: start: 20130521
  17. ASPIRIN [Concomitant]
     Indication: CARDIOVASCULAR EVENT PROPHYLAXIS
     Dosage: 325 MG, DAILY
     Route: 048
     Dates: start: 20130822
  18. DOXYCYCLA [Concomitant]
     Indication: INFECTION PROPHYLAXIS
     Dosage: 100 MG, DAILY
     Route: 048
     Dates: start: 20130822, end: 20130823

REACTIONS (1)
  - Delusion [Not Recovered/Not Resolved]
